FAERS Safety Report 11134350 (Version 2)
Quarter: 2015Q3

REPORT INFORMATION
  Report Type: Spontaneous
  Country: US (occurrence: US)
  Receive Date: 20150525
  Receipt Date: 20150727
  Transmission Date: 20151125
  Serious: No
  Sender: FDA-Public Use
  Company Number: US-BRISTOL-MYERS SQUIBB COMPANY-BMS-2015-033254

PATIENT
  Sex: Female

DRUGS (1)
  1. SPRYCEL [Suspect]
     Active Substance: DASATINIB
     Indication: PRODUCT USED FOR UNKNOWN INDICATION
     Dosage: 100 MG, QD
     Route: 048

REACTIONS (10)
  - Nausea [Unknown]
  - Vomiting [Unknown]
  - Anxiety [Unknown]
  - Depression [Unknown]
  - Somnolence [Unknown]
  - Panic attack [Unknown]
  - Decreased appetite [Unknown]
  - Arthritis [Unknown]
  - Headache [Unknown]
  - Weight decreased [Unknown]
